FAERS Safety Report 7051726-5 (Version None)
Quarter: 2010Q4

REPORT INFORMATION
  Report Type: 
  Country: None (occurrence: None)
  Receive Date: 20101019
  Receipt Date: 20101012
  Transmission Date: 20110411
  Serious: Yes (Other)
  Sender: FDA-Public Use
  Company Number: US-TEVA-251263USA

PATIENT
  Sex: Male

DRUGS (4)
  1. ZOLPIDEM TARTRATE [Suspect]
  2. TYLOX [Suspect]
  3. OXYCODONE HCL [Concomitant]
  4. PARACETAMOL [Concomitant]

REACTIONS (4)
  - DRUG ADMINISTRATION ERROR [None]
  - DRUG INEFFECTIVE [None]
  - LOSS OF CONSCIOUSNESS [None]
  - WRONG DRUG ADMINISTERED [None]
